FAERS Safety Report 12505890 (Version 1)
Quarter: 2016Q2

REPORT INFORMATION
  Report Type: Spontaneous
  Country: US (occurrence: US)
  Receive Date: 20160628
  Receipt Date: 20160628
  Transmission Date: 20160815
  Serious: No
  Sender: FDA-Public Use
  Company Number: US-MYLANLABS-2015M1046222

PATIENT
  Age: 67 Year
  Sex: Female
  Weight: 95.24 kg

DRUGS (6)
  1. METHOTREXATE (METHOTREXATE SODIUM) [Suspect]
     Active Substance: METHOTREXATE SODIUM
     Indication: RHEUMATOID ARTHRITIS
     Dosage: 10MG QW
     Route: 048
     Dates: start: 2012
  2. FOLIC ACID. [Concomitant]
     Active Substance: FOLIC ACID
     Dosage: UNK
     Route: 048
  3. AMBIEN [Concomitant]
     Active Substance: ZOLPIDEM TARTRATE
     Indication: INSOMNIA
     Dosage: UNK
     Route: 048
     Dates: start: 2007
  4. VITAMINS NOS [Concomitant]
     Active Substance: VITAMINS
     Dosage: UNK
     Route: 048
  5. EFFEXOR [Concomitant]
     Active Substance: VENLAFAXINE HYDROCHLORIDE
     Dosage: UNK
     Route: 048
  6. RITALIN [Concomitant]
     Active Substance: METHYLPHENIDATE HYDROCHLORIDE
     Indication: ATTENTION DEFICIT/HYPERACTIVITY DISORDER
     Dosage: UNK
     Route: 048

REACTIONS (4)
  - Skin ulcer [Recovered/Resolved]
  - Pruritus [Not Recovered/Not Resolved]
  - Blister [Recovered/Resolved]
  - Acne [Not Recovered/Not Resolved]

NARRATIVE: CASE EVENT DATE: 201512
